FAERS Safety Report 9699812 (Version 1)
Quarter: 2013Q4

REPORT INFORMATION
  Report Type: Report from Study
  Country: US (occurrence: US)
  Receive Date: 20131120
  Receipt Date: 20131120
  Transmission Date: 20140711
  Serious: Yes (Hospitalization, Disabling)
  Sender: FDA-Public Use
  Company Number: US-009507513-1311USA006771

PATIENT
  Age: 57 Year
  Sex: Female
  Weight: 95.24 kg

DRUGS (4)
  1. BOCEPREVIR [Suspect]
     Indication: HEPATITIS C
     Dosage: 800 MG, QD
     Route: 048
  2. REBETOL [Suspect]
     Indication: HEPATITIS C
     Dosage: 600 MG, QAM
     Route: 048
  3. REBETOL [Suspect]
     Dosage: 400 MG, QPM
     Route: 048
  4. PEGASYS [Suspect]
     Indication: HEPATITIS C
     Dosage: 180 MICROGRAM, QW

REACTIONS (4)
  - Asthenia [Recovered/Resolved]
  - Muscle spasms [Recovered/Resolved]
  - Fatigue [Recovered/Resolved]
  - Anaemia [Recovered/Resolved]
